FAERS Safety Report 21061384 (Version 2)
Quarter: 2022Q3

REPORT INFORMATION
  Report Type: Spontaneous
  Country: JP (occurrence: JP)
  Receive Date: 20220709
  Receipt Date: 20220808
  Transmission Date: 20221027
  Serious: Yes (Death, Hospitalization, Other)
  Sender: FDA-Public Use
  Company Number: JP-Teva Takeda Yakuhin-2022-JP-002765J

PATIENT
  Age: 69 Year

DRUGS (3)
  1. LANSOPRAZOLE [Suspect]
     Active Substance: LANSOPRAZOLE
     Indication: Product used for unknown indication
     Dosage: DOSAGE IS UNKNOWN
     Route: 048
     Dates: start: 20210922
  2. ASPIRIN [Concomitant]
     Active Substance: ASPIRIN
     Dosage: DOSAGE IS UNKNOWN
     Route: 048
  3. CELECOXIB [Concomitant]
     Active Substance: CELECOXIB
     Dosage: DOSAGE IS UNKNOWN
     Route: 048

REACTIONS (3)
  - Lung adenocarcinoma [Fatal]
  - Condition aggravated [Fatal]
  - Adverse reaction [Unknown]

NARRATIVE: CASE EVENT DATE: 20210922
